FAERS Safety Report 8044328-5 (Version None)
Quarter: 2012Q1

REPORT INFORMATION
  Report Type: 
  Country: None (occurrence: None)
  Receive Date: 20120113
  Receipt Date: 20120109
  Transmission Date: 20120608
  Serious: Yes (Life-Threatening, Hospitalization, Disabling)
  Sender: FDA-Public Use
  Company Number: CA-BAYER-2011-111697

PATIENT
  Age: 79 Year
  Sex: Female
  Weight: 57.7 kg

DRUGS (11)
  1. ATIVAN [Concomitant]
  2. AVELOX [Suspect]
     Indication: PNEUMONIA
     Dosage: DAILY DOSE 400 MG
     Route: 048
     Dates: start: 20100324, end: 20100327
  3. PANTOPRAZOLE SODIUM [Concomitant]
  4. ATACAND [Concomitant]
  5. CARBOCAL D [Concomitant]
     Dosage: UNK UNK, BID
     Route: 048
  6. INDOL [Concomitant]
  7. PAROXETINE [Concomitant]
  8. LASIX [Concomitant]
  9. COUMADIN [Concomitant]
  10. ALENDRONATE SODIUM [Concomitant]
  11. TIMOLOL MALEATE [Concomitant]

REACTIONS (9)
  - HALLUCINATION, VISUAL [None]
  - DECREASED APPETITE [None]
  - HYPONATRAEMIA [None]
  - VOMITING [None]
  - BALANCE DISORDER [None]
  - INFLUENZA LIKE ILLNESS [None]
  - CONFUSIONAL STATE [None]
  - FALL [None]
  - INAPPROPRIATE ANTIDIURETIC HORMONE SECRETION [None]
